FAERS Safety Report 7205961-3 (Version None)
Quarter: 2011Q1

REPORT INFORMATION
  Report Type: 
  Country: None (occurrence: None)
  Receive Date: 20110103
  Receipt Date: 20101222
  Transmission Date: 20110831
  Serious: No
  Sender: FDA-Public Use
  Company Number: US-BIOGENIDEC-2010BI040318

PATIENT
  Age: 33 Year
  Sex: Female

DRUGS (3)
  1. TYSABRI [Suspect]
     Indication: MULTIPLE SCLEROSIS
     Route: 042
     Dates: start: 20101105
  2. AVONEX [Concomitant]
     Indication: MULTIPLE SCLEROSIS
     Route: 030
     Dates: start: 20050501
  3. AVONEX [Concomitant]
     Route: 030
     Dates: start: 20020702

REACTIONS (6)
  - DRUG INEFFECTIVE [None]
  - STRESS [None]
  - PAIN IN EXTREMITY [None]
  - BURNING SENSATION [None]
  - HYPOAESTHESIA [None]
  - PRURITUS [None]
